FAERS Safety Report 18231995 (Version 2)
Quarter: 2020Q3

REPORT INFORMATION
  Report Type: Spontaneous
  Country: BR (occurrence: BR)
  Receive Date: 20200904
  Receipt Date: 20200909
  Transmission Date: 20201103
  Serious: Yes (Other)
  Sender: FDA-Public Use
  Company Number: BR-PFIZER INC-2020342712

PATIENT
  Age: 47 Year
  Sex: Male

DRUGS (2)
  1. ELIFORE [Suspect]
     Active Substance: DESVENLAFAXINE SUCCINATE
     Dosage: UNK
  2. ELIFORE [Suspect]
     Active Substance: DESVENLAFAXINE SUCCINATE
     Dosage: UNK

REACTIONS (6)
  - COVID-19 [Unknown]
  - Incorrect dose administered [Unknown]
  - Dizziness [Unknown]
  - Wrong technique in product usage process [Unknown]
  - Pyrexia [Unknown]
  - Lung disorder [Unknown]

NARRATIVE: CASE EVENT DATE: 202007
